FAERS Safety Report 5196278-X (Version None)
Quarter: 2006Q4

REPORT INFORMATION
  Report Type: 
  Country: None (occurrence: None)
  Receive Date: 20061222
  Receipt Date: 20061211
  Transmission Date: 20070319
  Serious: Yes (Disabling)
  Sender: FDA-Public Use
  Company Number: 2006152631

PATIENT
  Age: 61 Year
  Sex: Female
  Weight: 68.0396 kg

DRUGS (16)
  1. CELECOXIB (CELECOXIB) [Suspect]
     Indication: ARTHRITIS
     Dosage: (200 MG), ORAL
     Route: 048
     Dates: start: 20061110, end: 20061114
  2. AMLODIPINE [Concomitant]
  3. AMOXICILLIN [Concomitant]
  4. ASPIRIN [Concomitant]
  5. BENZYLPENICILLIN (BENZYLPENICILLIN) [Concomitant]
  6. DOXYCYCLINE [Concomitant]
  7. FLOXACILLIN SODIUM [Concomitant]
  8. FLUOXETINE [Concomitant]
  9. FRAGMIN [Concomitant]
  10. FUROSEMIDE [Concomitant]
  11. IPRATROPIUM BROMIDE [Concomitant]
  12. LEVOTHYROXINE SODIUM [Concomitant]
  13. METRONIDAZOLE [Concomitant]
  14. ORAMORPH SR [Concomitant]
  15. SALBUTAMOL (SALBUTAMOL) [Concomitant]
  16. TRAMADOL HCL [Concomitant]

REACTIONS (1)
  - RHABDOMYOLYSIS [None]
